FAERS Safety Report 7109698-0 (Version None)
Quarter: 2010Q4

REPORT INFORMATION
  Report Type: 
  Country: None (occurrence: None)
  Receive Date: 20101118
  Receipt Date: 20101109
  Transmission Date: 20110411
  Serious: Yes (Hospitalization, Other)
  Sender: FDA-Public Use
  Company Number: US-PFIZER INC-2009208438

PATIENT
  Sex: Female

DRUGS (7)
  1. CHANTIX [Suspect]
     Indication: SMOKING CESSATION THERAPY
     Dosage: 1 MG, 2X/DAY
     Route: 048
     Dates: start: 20080827, end: 20081001
  2. BENICAR [Concomitant]
     Dosage: 20 MG, UNK
  3. CALTRATE [Concomitant]
     Dosage: UNK
  4. ZINC [Concomitant]
     Dosage: UNK
  5. GLUCOSAMINE [Concomitant]
     Dosage: UNK
  6. FISH OIL [Concomitant]
     Dosage: UNK
  7. OSTEO [Concomitant]
     Dosage: UNK

REACTIONS (9)
  - AMNESIA [None]
  - ANGER [None]
  - BIPOLAR II DISORDER [None]
  - HOMICIDAL IDEATION [None]
  - HYPERTENSION [None]
  - MUSCLE SPASMS [None]
  - PSYCHOTIC DISORDER [None]
  - SUICIDAL IDEATION [None]
  - TACHYCARDIA [None]
